FAERS Safety Report 13287098 (Version 1)
Quarter: 2017Q1

REPORT INFORMATION
  Report Type: Spontaneous
  Country: CN (occurrence: CN)
  Receive Date: 20170302
  Receipt Date: 20170302
  Transmission Date: 20170428
  Serious: Yes (Other)
  Sender: FDA-Public Use
  Company Number: CN-ELI_LILLY_AND_COMPANY-CN201702010381

PATIENT
  Age: 68 Year
  Sex: Female
  Weight: 60 kg

DRUGS (4)
  1. HUMULIN R [Suspect]
     Active Substance: INSULIN HUMAN
     Dosage: 20 U, EACH NIGHT
     Route: 058
     Dates: start: 2012
  2. HUMULIN R [Suspect]
     Active Substance: INSULIN HUMAN
     Dosage: 14 U, TID MORNING, NOON AND NIGHT
     Route: 058
     Dates: start: 2016
  3. HUMULIN R [Suspect]
     Active Substance: INSULIN HUMAN
     Dosage: 14 U, QD AT NOON
     Route: 058
     Dates: start: 2012
  4. HUMULIN R [Suspect]
     Active Substance: INSULIN HUMAN
     Indication: DIABETES MELLITUS
     Dosage: 20 U, EACH MORNING
     Route: 058
     Dates: start: 2012

REACTIONS (6)
  - Cerebral infarction [Unknown]
  - Drug dose omission [Unknown]
  - Gait disturbance [Unknown]
  - Blood glucose abnormal [Unknown]
  - Hyperglycaemia [Unknown]
  - Skin mass [Unknown]
